FAERS Safety Report 4944203-6 (Version None)
Quarter: 2006Q1

REPORT INFORMATION
  Report Type: 
  Country: None (occurrence: None)
  Receive Date: 20060309
  Receipt Date: 20060221
  Transmission Date: 20060701
  Serious: Yes (Death, Hospitalization)
  Sender: FDA-Public Use
  Company Number: 2005-00781

PATIENT
  Age: 55 Year
  Sex: Male
  Weight: 125.2 kg

DRUGS (17)
  1. VELCADE [Suspect]
     Indication: MULTIPLE MYELOMA
     Dosage: 1.00 MG/M2, INTRAVENOUS
     Route: 042
     Dates: start: 20050210, end: 20050221
  2. SCIO-469 () CAPSULE [Suspect]
     Indication: MULTIPLE MYELOMA
     Dosage: 60.00 MG, TID, ORAL
     Route: 048
     Dates: start: 20050126, end: 20050221
  3. ACCUPRIL [Concomitant]
  4. TOPROL-XL [Concomitant]
  5. LEVOXYL [Concomitant]
  6. LIPITOR [Concomitant]
  7. GLUCOTROL XL [Concomitant]
  8. DEPO-TESTOSTERONE [Concomitant]
  9. ZOMETA [Concomitant]
  10. IMODIUM [Concomitant]
  11. FISH OIL (FISH OIL) CAPSULE [Concomitant]
  12. GLUCOSAMINE (GLUCOSAMINE) CAPSULE [Concomitant]
  13. PROCRIT [Concomitant]
  14. PHYTONADIONE [Concomitant]
  15. ACETAMINOPHEN [Concomitant]
  16. BENADRYL (SODIUM CITRATE, AMMONIUM CHLORIDE, MENTHOL, DIPHENHYDRAMINE [Concomitant]
  17. DARVON [Concomitant]

REACTIONS (11)
  - ANAEMIA [None]
  - ASTHENIA [None]
  - BACK PAIN [None]
  - CHEST PAIN [None]
  - DISEASE PROGRESSION [None]
  - HYPOTENSION [None]
  - INFECTION [None]
  - METABOLIC ACIDOSIS [None]
  - MULTIPLE MYELOMA [None]
  - RESPIRATORY ACIDOSIS [None]
  - SEPSIS [None]
